FAERS Safety Report 10522035 (Version 1)
Quarter: 2014Q4

REPORT INFORMATION
  Report Type: Spontaneous
  Country: US (occurrence: None)
  Receive Date: 20141014
  Receipt Date: 20141014
  Transmission Date: 20150528
  Serious: Yes (Disabling, Other)
  Sender: FDA-Public Use
  Company Number: 2014-20475

PATIENT
  Age: 72 Year
  Sex: Male

DRUGS (1)
  1. EYLEA [Suspect]
     Active Substance: AFLIBERCEPT
     Indication: AGE-RELATED MACULAR DEGENERATION
     Dates: start: 20140929, end: 20140929

REACTIONS (4)
  - Blindness [None]
  - Ocular hyperaemia [None]
  - Endophthalmitis [None]
  - Eye irritation [None]

NARRATIVE: CASE EVENT DATE: 20141003
